FAERS Safety Report 11654962 (Version 1)
Quarter: 2015Q4

REPORT INFORMATION
  Report Type: Spontaneous
  Country: IL (occurrence: IL)
  Receive Date: 20151023
  Receipt Date: 20151023
  Transmission Date: 20160304
  Serious: Yes (Hospitalization)
  Sender: FDA-Public Use
  Company Number: PHHY2015IL135584

PATIENT
  Age: 46 Year
  Sex: Female

DRUGS (2)
  1. FK [Concomitant]
     Indication: CYTOMEGALOVIRUS INFECTION
     Route: 065
  2. CERTICAN [Suspect]
     Active Substance: EVEROLIMUS
     Indication: RENAL TRANSPLANT
     Dosage: UNK UNK, BID
     Route: 048

REACTIONS (5)
  - Intracranial aneurysm [Unknown]
  - Off label use [Unknown]
  - Vomiting [Unknown]
  - Confusional state [Unknown]
  - Dysphagia [Unknown]
